FAERS Safety Report 7387017-2 (Version None)
Quarter: 2011Q1

REPORT INFORMATION
  Report Type: 
  Country: None (occurrence: None)
  Receive Date: 20110331
  Receipt Date: 20110307
  Transmission Date: 20110831
  Serious: Yes (Death, Life-Threatening, Hospitalization)
  Sender: FDA-Public Use
  Company Number: US-NOVOPROD-324554

PATIENT

DRUGS (1)
  1. NOVOSEVEN [Suspect]
     Dosage: 90 UNK, SINGLE
     Dates: start: 20020101, end: 20090101

REACTIONS (2)
  - DEEP VEIN THROMBOSIS [None]
  - DEATH [None]
